FAERS Safety Report 7268597-4 (Version None)
Quarter: 2011Q2

REPORT INFORMATION
  Report Type: 
  Country: None (occurrence: None)
  Receive Date: 20110201
  Receipt Date: 20101014
  Transmission Date: 20111010
  Serious: Yes (Hospitalization, Other)
  Sender: FDA-Public Use
  Company Number: US-BAYER-200944106NA

PATIENT
  Sex: Female
  Weight: 64 kg

DRUGS (9)
  1. YAZ [Suspect]
     Route: 048
  2. YASMIN [Suspect]
     Indication: ACNE
  3. ATIVAN [Concomitant]
     Indication: ANXIETY
     Dosage: ABOUT 1 YEAR
  4. ADVAIR [Concomitant]
     Indication: PRODUCT USED FOR UNKNOWN INDICATION
  5. ASCORBIC ACID [Concomitant]
     Indication: PRODUCT USED FOR UNKNOWN INDICATION
  6. YASMIN [Suspect]
     Indication: PREMENSTRUAL SYNDROME
     Route: 048
     Dates: start: 20010201, end: 20080101
  7. MONONESSA-28 [Concomitant]
  8. PAROXETINE HCL [Concomitant]
     Indication: ANXIETY
     Dosage: ABOUT 1 YEAR
  9. MICROGESTIN FE 1.5/30 [Suspect]

REACTIONS (2)
  - UTERINE HAEMORRHAGE [None]
  - THROMBOSIS [None]
